FAERS Safety Report 6115526-2 (Version None)
Quarter: 2009Q1

REPORT INFORMATION
  Report Type: 
  Country: None (occurrence: None)
  Receive Date: 20090313
  Receipt Date: 20090310
  Transmission Date: 20090719
  Serious: Yes (Life-Threatening)
  Sender: FDA-Public Use
  Company Number: GR-ASTRAZENECA-2009SE01081

PATIENT
  Age: 69 Year
  Sex: Male

DRUGS (4)
  1. CRESTOR [Suspect]
     Indication: HYPERCHOLESTEROLAEMIA
     Route: 048
     Dates: start: 20081201
  2. SYMBICORT [Suspect]
     Indication: ASTHMA
     Route: 055
     Dates: start: 20080301
  3. JANUVIA [Concomitant]
     Indication: DIABETES MELLITUS
  4. GLUCOPHAGE [Concomitant]
     Indication: DIABETES MELLITUS

REACTIONS (1)
  - LUNG NEOPLASM MALIGNANT [None]
